FAERS Safety Report 6347069-5 (Version None)
Quarter: 2009Q3

REPORT INFORMATION
  Report Type: 
  Country: None (occurrence: None)
  Receive Date: 20090909
  Receipt Date: 20090909
  Transmission Date: 20100115
  Serious: Yes (Other)
  Sender: FDA-Public Use
  Company Number: None

PATIENT
  Sex: Female
  Weight: 72.5755 kg

DRUGS (2)
  1. CYCLOBENAZPRINE [Suspect]
     Indication: BACK DISORDER
     Dosage: 10 MG EVERY 8 HOURS PO, 1 TIME
     Route: 048
     Dates: start: 20090907, end: 20090907
  2. CYCLOBENAZPRINE [Suspect]
     Indication: MUSCLE SPASMS
     Dosage: 10 MG EVERY 8 HOURS PO, 1 TIME
     Route: 048
     Dates: start: 20090907, end: 20090907

REACTIONS (3)
  - BEDRIDDEN [None]
  - MUSCLE SPASMS [None]
  - PSYCHOTIC DISORDER [None]
